FAERS Safety Report 16178351 (Version 2)
Quarter: 2019Q2

REPORT INFORMATION
  Report Type: Spontaneous
  Country: ES (occurrence: ES)
  Receive Date: 20190410
  Receipt Date: 20190423
  Transmission Date: 20190711
  Serious: Yes (Hospitalization, Disabling, Other)
  Sender: FDA-Public Use
  Company Number: ES-AUROBINDO-AUR-APL-2019-018894

PATIENT

DRUGS (5)
  1. QUETIAPINE. [Concomitant]
     Active Substance: QUETIAPINE
     Indication: MANIA
     Dosage: 600 MILLIGRAM, ONCE A DAY
     Route: 065
  2. RISPERIDONE. [Suspect]
     Active Substance: RISPERIDONE
     Indication: AGITATION
     Dosage: 6 MILLIGRAM, ONCE A DAY
     Route: 065
  3. CLONAZEPAM. [Concomitant]
     Active Substance: CLONAZEPAM
     Indication: MANIA
     Dosage: 2 MILLIGRAM, ONCE A DAY
     Route: 065
  4. LITHIUM CARBONATE. [Suspect]
     Active Substance: LITHIUM CARBONATE
     Indication: MANIA
     Dosage: 1200 MILLIGRAM, ONCE A DAY
     Route: 065
  5. QUETIAPINE. [Concomitant]
     Active Substance: QUETIAPINE
     Indication: AGITATION
     Dosage: 1000 MILLIGRAM, ONCE A DAY
     Route: 065

REACTIONS (18)
  - Status epilepticus [Unknown]
  - Dementia [Recovered/Resolved]
  - Amnesia [Recovering/Resolving]
  - Encephalopathy [Recovered/Resolved]
  - Dysarthria [Unknown]
  - Pulmonary embolism [Unknown]
  - Disturbance in attention [Recovering/Resolving]
  - Ataxia [Unknown]
  - Disorientation [Recovered/Resolved]
  - Cognitive disorder [Recovered/Resolved]
  - Delirium [Recovering/Resolving]
  - Myoclonus [Unknown]
  - Dysphagia [Unknown]
  - Psychomotor hyperactivity [Unknown]
  - Anal incontinence [Unknown]
  - Altered state of consciousness [Recovered/Resolved]
  - Hallucination, visual [Unknown]
  - Neurotoxicity [Recovered/Resolved]
